FAERS Safety Report 8237068-0 (Version None)
Quarter: 2012Q1

REPORT INFORMATION
  Report Type: 
  Country: None (occurrence: None)
  Receive Date: 20120327
  Receipt Date: 20120321
  Transmission Date: 20120608
  Serious: Yes (Other)
  Sender: FDA-Public Use
  Company Number: US-PFIZER INC-2012074182

PATIENT
  Sex: Male

DRUGS (1)
  1. TOVIAZ [Suspect]
     Dosage: UNK

REACTIONS (4)
  - PULMONARY OEDEMA [None]
  - OEDEMA PERIPHERAL [None]
  - GASTRIC HAEMORRHAGE [None]
  - CARDIAC FAILURE CONGESTIVE [None]
